FAERS Safety Report 24834258 (Version 1)
Quarter: 2025Q1

REPORT INFORMATION
  Report Type: Spontaneous
  Country: CA (occurrence: CA)
  Receive Date: 20250113
  Receipt Date: 20250113
  Transmission Date: 20250409
  Serious: Yes (Other)
  Sender: ACCORD
  Company Number: None

PATIENT
  Age: 13 Year
  Sex: Male
  Weight: 44.45 kg

DRUGS (3)
  1. FLUOXETINE [Suspect]
     Active Substance: FLUOXETINE HYDROCHLORIDE
     Indication: Anxiety
     Route: 048
  2. GUANFACINE HYDROCHLORIDE [Concomitant]
     Active Substance: GUANFACINE HYDROCHLORIDE
  3. FLUOXETINE [Suspect]
     Active Substance: FLUOXETINE HYDROCHLORIDE
     Indication: Anxiety
     Route: 048

REACTIONS (8)
  - Poor quality sleep [Recovering/Resolving]
  - Hyperhidrosis [Recovering/Resolving]
  - Hyperthermia [Recovering/Resolving]
  - Decreased appetite [Recovering/Resolving]
  - Myoclonus [Recovering/Resolving]
  - Feeling hot [Recovering/Resolving]
  - Serotonin syndrome [Recovering/Resolving]
  - Muscle spasms [Recovering/Resolving]
